FAERS Safety Report 6371595-6 (Version None)
Quarter: 2009Q3

REPORT INFORMATION
  Report Type: 
  Country: None (occurrence: None)
  Receive Date: 20090923
  Receipt Date: 20080401
  Transmission Date: 20100115
  Serious: Yes (Hospitalization)
  Sender: FDA-Public Use
  Company Number: US-ASTRAZENECA-2007UW25103

PATIENT
  Age: 37 Year
  Sex: Female
  Weight: 102.5 kg

DRUGS (23)
  1. SEROQUEL [Suspect]
     Indication: DEPRESSION
     Route: 048
     Dates: start: 19980101, end: 20050101
  2. SEROQUEL [Suspect]
     Route: 048
     Dates: start: 20021121
  3. EFFEXOR [Concomitant]
     Route: 048
  4. RISPERDAL [Concomitant]
     Route: 048
  5. WELLBUTRIN [Concomitant]
     Route: 048
  6. ALBUTEROL [Concomitant]
     Route: 048
  7. ALBUTEROL [Concomitant]
     Route: 055
  8. ALBUTEROL [Concomitant]
     Route: 055
  9. TRAZODONE HCL [Concomitant]
     Route: 048
  10. BUSPAR [Concomitant]
     Route: 048
  11. MOTRIN [Concomitant]
     Route: 048
  12. ABILIFY [Concomitant]
     Route: 048
  13. DEPAKOTE [Concomitant]
     Route: 048
  14. ATIVAN [Concomitant]
     Route: 048
  15. LEVAQUIN [Concomitant]
     Route: 048
  16. ZANTAC [Concomitant]
     Route: 048
  17. PREDNISONE [Concomitant]
     Route: 048
  18. SINGULAIR [Concomitant]
     Route: 048
  19. ZOLOFT [Concomitant]
     Route: 048
  20. DOXYCYCLINE [Concomitant]
     Route: 048
  21. ZINACEF [Concomitant]
     Route: 048
  22. ACTOS [Concomitant]
     Route: 048
  23. LANTUS [Concomitant]
     Route: 065
     Dates: start: 20050324

REACTIONS (1)
  - DIABETES MELLITUS [None]
